FAERS Safety Report 21298176 (Version 1)
Quarter: 2022Q3

REPORT INFORMATION
  Report Type: Spontaneous
  Country: US (occurrence: US)
  Receive Date: 20220906
  Receipt Date: 20220906
  Transmission Date: 20221027
  Serious: No
  Sender: FDA-Public Use
  Company Number: US-PFIZER INC-202201115157

PATIENT
  Age: 68 Year
  Sex: Female

DRUGS (1)
  1. XELJANZ XR [Suspect]
     Active Substance: TOFACITINIB CITRATE
     Dosage: 11 MG, DAILY (TAKE 1 TABLET (XR 11MG) BY MOUTH DAILY)
     Route: 048
     Dates: start: 20220730, end: 20220826

REACTIONS (3)
  - Therapeutic product effect incomplete [Unknown]
  - Fatigue [Unknown]
  - Asthenia [Unknown]
